FAERS Safety Report 10334192 (Version 4)
Quarter: 2016Q3

REPORT INFORMATION
  Report Type: Spontaneous
  Country: US (occurrence: US)
  Receive Date: 20140723
  Receipt Date: 20160912
  Transmission Date: 20161109
  Serious: No
  Sender: FDA-Public Use
  Company Number: US-BAYER-2014-110202

PATIENT
  Age: 36 Year
  Sex: Female

DRUGS (4)
  1. BETASERON [Suspect]
     Active Substance: INTERFERON BETA-1B
     Indication: MULTIPLE SCLEROSIS
     Dosage: 0.1875 MG /0.75ML, QOD
     Route: 058
     Dates: start: 1997, end: 1997
  2. BETASERON [Suspect]
     Active Substance: INTERFERON BETA-1B
     Indication: MULTIPLE SCLEROSIS
     Dosage: 0.125 MG /0.5 ML, QOD
     Route: 058
     Dates: start: 1997, end: 1997
  3. BETASERON [Suspect]
     Active Substance: INTERFERON BETA-1B
     Indication: MULTIPLE SCLEROSIS
     Dosage: 0.25MG/ML, QOD
     Route: 058
     Dates: start: 1997
  4. BETASERON [Suspect]
     Active Substance: INTERFERON BETA-1B
     Indication: MULTIPLE SCLEROSIS
     Dosage: 0.0625 MG / 0.25 ML, QOD
     Route: 058
     Dates: start: 1997, end: 1997

REACTIONS (5)
  - Pyrexia [None]
  - Hepatic enzyme increased [None]
  - Injection site pain [None]
  - Injection site erythema [Not Recovered/Not Resolved]
  - Abdominal discomfort [None]

NARRATIVE: CASE EVENT DATE: 1997
